FAERS Safety Report 9601920 (Version 1)
Quarter: 2013Q4

REPORT INFORMATION
  Report Type: Spontaneous
  Country: US (occurrence: None)
  Receive Date: 20131004
  Receipt Date: 20131004
  Transmission Date: 20140711
  Serious: Yes (Hospitalization)
  Sender: FDA-Public Use
  Company Number: None

PATIENT
  Age: 74 Year
  Sex: Female
  Weight: 54.89 kg

DRUGS (12)
  1. PRADAXA [Suspect]
     Indication: ATRIAL FIBRILLATION
     Dosage: 1 CAPSULE BID ORAL
     Route: 048
  2. LISINOPRIL [Concomitant]
  3. ZOLPIDEM [Concomitant]
  4. RANITIDINE [Concomitant]
  5. PRAVASTATIN [Concomitant]
  6. POTASSIUM CHLORIDE [Concomitant]
  7. PANTOPRAZOLE [Concomitant]
  8. OXYBUTYNIN [Concomitant]
  9. ISOSORBIDE MONITRATE [Concomitant]
  10. FUROSEMIDE [Concomitant]
  11. CITALOPRAM [Concomitant]
  12. CARVEDILOL [Concomitant]

REACTIONS (6)
  - Anaemia [None]
  - Acute respiratory failure [None]
  - Pneumonia aspiration [None]
  - Haemoptysis [None]
  - Haematoma [None]
  - Contusion [None]
